FAERS Safety Report 7542443-3 (Version None)
Quarter: 2011Q2

REPORT INFORMATION
  Report Type: 
  Country: None (occurrence: None)
  Receive Date: 20110613
  Receipt Date: 20110415
  Transmission Date: 20111010
  Serious: No
  Sender: FDA-Public Use
  Company Number: A0924685A

PATIENT
  Sex: Female

DRUGS (1)
  1. NICORETTE [Suspect]
     Dosage: 2MG SEE DOSAGE TEXT
     Dates: start: 20101101

REACTIONS (1)
  - DRUG ADMINISTRATION ERROR [None]
